FAERS Safety Report 6938091-6 (Version None)
Quarter: 2010Q3

REPORT INFORMATION
  Report Type: 
  Country: None (occurrence: None)
  Receive Date: 20100817
  Receipt Date: 20100804
  Transmission Date: 20110219
  Serious: Yes (Other)
  Sender: FDA-Public Use
  Company Number: 2010AP001671

PATIENT
  Age: 5 Week
  Sex: Male

DRUGS (2)
  1. RISPERIDONE [Suspect]
     Dosage: TRPL
  2. CANNABIS (CANNABIS) [Suspect]
     Dosage: TRPL

REACTIONS (3)
  - FEELING JITTERY [None]
  - MATERNAL DRUGS AFFECTING FOETUS [None]
  - NEUTROPENIA [None]
